FAERS Safety Report 5862566-4 (Version None)
Quarter: 2008Q3

REPORT INFORMATION
  Report Type: 
  Country: None (occurrence: None)
  Receive Date: 20080828
  Receipt Date: 20080823
  Transmission Date: 20090109
  Serious: Yes (Other)
  Sender: FDA-Public Use
  Company Number: US-JNJFOC-20080705386

PATIENT
  Sex: Female
  Weight: 64.41 kg

DRUGS (1)
  1. REMICADE [Suspect]
     Indication: CROHN'S DISEASE
     Dosage: ON INFLIXIMAB FOR 18 MONTHS
     Route: 042

REACTIONS (2)
  - BREAST CANCER [None]
  - MALAISE [None]
